FAERS Safety Report 9048523 (Version 1)
Quarter: 2013Q1

REPORT INFORMATION
  Report Type: Spontaneous
  Country: US (occurrence: None)
  Receive Date: 20130116
  Receipt Date: 20130116
  Transmission Date: 20140127
  Serious: Yes (Other)
  Sender: FDA-Public Use
  Company Number: USA/USA/13/0027437

PATIENT
  Age: 45 Year
  Sex: Male

DRUGS (4)
  1. ZOLPIDEM [Suspect]
     Indication: INSOMNIA
  2. PAROXETINE (PAROXETINE) [Suspect]
     Indication: DEPRESSION
  3. QUETIAPINE FUMARATE  (QUETIAPINE) [Concomitant]
  4. LORAZEPAM (LORAZEPAM) [Concomitant]

REACTIONS (17)
  - Drug interaction [None]
  - Insomnia [None]
  - Amnesia [None]
  - Agitation [None]
  - Confusional state [None]
  - Catatonia [None]
  - Aggression [None]
  - Speech disorder [None]
  - Homicide [None]
  - No therapeutic response [None]
  - Confusional state [None]
  - Incoherent [None]
  - Glassy eyes [None]
  - Thinking abnormal [None]
  - Convulsion [None]
  - Stress [None]
  - Incorrect dose administered [None]
